FAERS Safety Report 8859137 (Version 1)
Quarter: 2012Q4

REPORT INFORMATION
  Report Type: Spontaneous
  Country: US (occurrence: None)
  Receive Date: 20121024
  Receipt Date: 20121024
  Transmission Date: 20130627
  Serious: Yes (Hospitalization)
  Sender: FDA-Public Use
  Company Number: None

PATIENT
  Age: 50 Year
  Sex: Female
  Weight: 63.5 kg

DRUGS (6)
  1. HUMIRA [Suspect]
     Indication: ALLERGIC REACTION
     Dosage: 40 mg 2 x/month sq
     Route: 058
     Dates: start: 20110218, end: 20110412
  2. HUMIRA [Suspect]
     Indication: VISUAL IMPAIRMENT
     Dosage: 40 mg 2 x/month sq
     Route: 058
     Dates: start: 20110218, end: 20110412
  3. HUMIRA [Suspect]
     Indication: FATIGUE
     Dosage: 40 mg 2 x/month sq
     Route: 058
     Dates: start: 20110218, end: 20110412
  4. HUMIRA [Suspect]
     Indication: ALLERGIC REACTION
     Dates: start: 20110821, end: 20120311
  5. HUMIRA [Suspect]
     Indication: VISUAL IMPAIRMENT
     Dates: start: 20110821, end: 20120311
  6. HUMIRA [Suspect]
     Indication: FATIGUE
     Dates: start: 20110821, end: 20120311

REACTIONS (6)
  - Rash [None]
  - Fatigue [None]
  - Asthenia [None]
  - Impaired work ability [None]
  - Loss of employment [None]
  - Urinary retention [None]
